FAERS Safety Report 23462613 (Version 1)
Quarter: 2024Q1

REPORT INFORMATION
  Report Type: Spontaneous
  Country: US (occurrence: US)
  Receive Date: 20240131
  Receipt Date: 20240131
  Transmission Date: 20240409
  Serious: No
  Sender: FDA-Public Use
  Company Number: US-009507513-2401USA008960

PATIENT
  Age: 65 Year
  Sex: Male

DRUGS (2)
  1. BELSOMRA [Suspect]
     Active Substance: SUVOREXANT
     Indication: Insomnia
     Dosage: 20 MILLIGRAM, QD
     Route: 048
  2. ALLI [Concomitant]
     Active Substance: ORLISTAT

REACTIONS (1)
  - Therapeutic product effect variable [Unknown]
